FAERS Safety Report 19777183 (Version 1)
Quarter: 2021Q3

REPORT INFORMATION
  Report Type: Other
  Country: US (occurrence: US)
  Receive Date: 20210902
  Receipt Date: 20210902
  Transmission Date: 20211014
  Serious: Yes (Hospitalization)
  Sender: FDA-Public Use
  Company Number: US-ROCHE-2848238

PATIENT
  Sex: Male

DRUGS (2)
  1. XELODA [Suspect]
     Active Substance: CAPECITABINE
     Dosage: TAKE 4 TABLET(S) BY MOUTH TWICE A DAY ON DAYS 1?14
     Route: 048
  2. XELODA [Suspect]
     Active Substance: CAPECITABINE
     Indication: SMALL INTESTINE CARCINOMA
     Route: 048

REACTIONS (4)
  - Gastrointestinal viral infection [Unknown]
  - Off label use [Unknown]
  - Product prescribing error [Unknown]
  - Thrombosis [Unknown]
